FAERS Safety Report 8979362 (Version 2)
Quarter: 2012Q4

REPORT INFORMATION
  Report Type: 
  Country: KR (occurrence: KR)
  Receive Date: 20121221
  Receipt Date: 20121227
  Transmission Date: 20130627
  Serious: Yes (Hospitalization)
  Sender: FDA-Public Use
  Company Number: KR-BAYER-2012-132541

PATIENT
  Age: 22 Year
  Sex: Female

DRUGS (1)
  1. GADOVIST [Suspect]
     Dosage: UNK
     Dates: start: 20121217

REACTIONS (3)
  - Dyspnoea [None]
  - VIIth nerve paralysis [None]
  - Urticaria [None]
